FAERS Safety Report 5981526-6 (Version None)
Quarter: 2008Q4

REPORT INFORMATION
  Report Type: 
  Country: None (occurrence: None)
  Receive Date: 20081205
  Receipt Date: 20081127
  Transmission Date: 20090506
  Serious: Yes (Life-Threatening, Hospitalization)
  Sender: FDA-Public Use
  Company Number: DE-ROCHE-555782

PATIENT
  Sex: Female
  Weight: 80 kg

DRUGS (27)
  1. METHOXY POLYETHYLENE GLYCOL-EPOETIN BETA [Suspect]
     Dosage: DOSAGE FORM REPORTED AS PFS(PRE-FILLED SYRINGE).
     Route: 042
     Dates: start: 20070905
  2. METHOXY POLYETHYLENE GLYCOL-EPOETIN BETA [Suspect]
     Route: 042
     Dates: start: 20071003
  3. METHOXY POLYETHYLENE GLYCOL-EPOETIN BETA [Suspect]
     Route: 042
     Dates: start: 20071107
  4. METHOXY POLYETHYLENE GLYCOL-EPOETIN BETA [Suspect]
     Route: 042
     Dates: start: 20071205
  5. METHOXY POLYETHYLENE GLYCOL-EPOETIN BETA [Suspect]
     Route: 042
     Dates: start: 20080109
  6. METHOXY POLYETHYLENE GLYCOL-EPOETIN BETA [Suspect]
     Route: 042
     Dates: start: 20080206
  7. METHOXY POLYETHYLENE GLYCOL-EPOETIN BETA [Suspect]
     Route: 042
     Dates: start: 20080305
  8. NEORECORMON [Concomitant]
     Route: 065
     Dates: start: 20020814, end: 20060611
  9. ERYPO [Concomitant]
     Dates: start: 20010905, end: 20020813
  10. ERYPO [Concomitant]
     Dates: start: 20060612, end: 20070831
  11. CALCIUMACETAT-NEFRO [Concomitant]
     Dosage: DRUG NAME REPORTED AS CALCIUMACETAT-NEPHRO.
     Dates: start: 20060626
  12. NEPHROTRANS [Concomitant]
     Dates: start: 20061218
  13. GABAPENTIN [Concomitant]
     Dosage: DRUG NAME REPORTED AS GABAPENTIN 100.
     Dates: start: 20061218
  14. METHIZOL 5 [Concomitant]
     Dates: start: 20061218
  15. CIPRALEX [Concomitant]
     Dosage: DRUG NAME REPORTED AS CIPRALEX 10.
     Dates: start: 20060725
  16. ASPIRIN [Concomitant]
     Dates: start: 20060612
  17. NEXIUM [Concomitant]
     Dosage: DRUG NAME REPORTED AS NEXIUM UMPS 40.
     Dates: start: 20061218
  18. LANTUS [Concomitant]
     Dosage: DRUG NAME REPORTED AS LANTUS 100. TOTAL DAILY DOSE REPORTED AS 14 IE.
     Dates: start: 20070314
  19. DEKRISTOL [Concomitant]
     Dosage: DRUG NAME REPORTED AS DEKRISTOL 20000.
     Dates: start: 20060612
  20. FERRLECIT [Concomitant]
     Dates: start: 20070320
  21. ADDIVIT [Concomitant]
     Dates: start: 20061201
  22. BONDIOL [Concomitant]
     Dosage: DRUG NAME REPORTED AS BONDIOL 0.5.
     Dates: start: 20060612
  23. ELUTIT-NATRIUM [Concomitant]
     Dates: start: 20070815
  24. HUMALOG [Concomitant]
     Dosage: DRUG NAME REPORTED AS HUMALOG 100. TOTAL DAILY DOSE REPORTED AS 26 IE.
     Dates: start: 20070815
  25. MIRTAZAPINE [Concomitant]
     Dates: start: 20071011
  26. LACTULOSE [Concomitant]
     Dates: start: 20071107
  27. TAVANIC [Concomitant]
     Dates: start: 20080214, end: 20080218

REACTIONS (3)
  - CARDIAC FAILURE ACUTE [None]
  - CLOSTRIDIUM DIFFICILE COLITIS [None]
  - HYPOTENSION [None]
